FAERS Safety Report 20230929 (Version 2)
Quarter: 2025Q3

REPORT INFORMATION
  Report Type: Report from Study
  Country: US (occurrence: US)
  Receive Date: 20211227
  Receipt Date: 20250818
  Transmission Date: 20251020
  Serious: Yes (Other)
  Sender: AUROBINDO
  Company Number: US-MLMSERVICE-20211208-3256928-3

PATIENT
  Age: 62 Year
  Sex: Male

DRUGS (1)
  1. CEFUROXIME [Suspect]
     Active Substance: CEFUROXIME
     Indication: Product used for unknown indication
     Route: 065

REACTIONS (3)
  - Macular oedema [Recovered/Resolved]
  - Macular detachment [Recovered/Resolved]
  - Retinal toxicity [Recovered/Resolved]
